FAERS Safety Report 18273882 (Version 2)
Quarter: 2020Q4

REPORT INFORMATION
  Report Type: Report from Study
  Country: US (occurrence: US)
  Receive Date: 20200916
  Receipt Date: 20201016
  Transmission Date: 20210113
  Serious: Yes (Hospitalization, Other)
  Sender: FDA-Public Use
  Company Number: US-GILEAD-2020-0494552

PATIENT
  Sex: Female

DRUGS (1)
  1. AZTREONAM LYSINE [Suspect]
     Active Substance: AZTREONAM LYSINE
     Indication: CYSTIC FIBROSIS LUNG
     Dosage: 75 MG, TID, EVERY OTHER MONTH
     Route: 065

REACTIONS (5)
  - Cystic fibrosis respiratory infection suppression [Unknown]
  - Cystic fibrosis [Unknown]
  - Off label use [Unknown]
  - Rash papular [Unknown]
  - Chest pain [Unknown]
